FAERS Safety Report 6435896-5 (Version None)
Quarter: 2009Q4

REPORT INFORMATION
  Report Type: 
  Country: None (occurrence: None)
  Receive Date: 20091111
  Receipt Date: 20091030
  Transmission Date: 20100525
  Serious: Yes (Other)
  Sender: FDA-Public Use
  Company Number: US-PFIZER INC-2009269869

PATIENT
  Sex: Male

DRUGS (1)
  1. SUTENT [Suspect]
     Dosage: 50 MG, DAILY X 14 DAYS Q21 DAYS
     Dates: start: 20090826, end: 20090908

REACTIONS (2)
  - LOSS OF CONSCIOUSNESS [None]
  - WEIGHT DECREASED [None]
